FAERS Safety Report 6493948-8 (Version None)
Quarter: 2009Q4

REPORT INFORMATION
  Report Type: 
  Country: None (occurrence: None)
  Receive Date: 20091214
  Receipt Date: 20081125
  Transmission Date: 20100525
  Serious: No
  Sender: FDA-Public Use
  Company Number: US-BRISTOL-MYERS SQUIBB COMPANY-14422026

PATIENT
  Age: 23 Year
  Sex: Female

DRUGS (5)
  1. ABILIFY [Suspect]
     Dosage: INITIATED 3 MONTHS AGO
     Dates: start: 20080101
  2. TRILEPTAL [Concomitant]
  3. WELLBUTRIN [Concomitant]
  4. CLONAZEPAM [Concomitant]
  5. ADDERALL 10 [Concomitant]

REACTIONS (1)
  - TREMOR [None]
